FAERS Safety Report 24118274 (Version 2)
Quarter: 2024Q3

REPORT INFORMATION
  Report Type: Report from Study
  Country: EG (occurrence: EG)
  Receive Date: 20240722
  Receipt Date: 20240826
  Transmission Date: 20241017
  Serious: Yes (Other)
  Sender: NOVARTIS
  Company Number: EG-002147023-NVSC2024EG138617

PATIENT
  Sex: Female

DRUGS (3)
  1. COSENTYX [Suspect]
     Active Substance: SECUKINUMAB
     Indication: Hidradenitis
     Dosage: 300 MG(ONE PREFILLED PEN EVERY WEEK FOR 4 WEEKS THEN ONE PREFILLED PEN EVERY MONTH)
     Route: 058
  2. COSENTYX [Suspect]
     Active Substance: SECUKINUMAB
     Dosage: 300 MG (3 PREFILLED COSENTYX 300 MG SUBCUTANEOUS PENS PER MONTH THEN ONE PEN EVERY MONTH)
     Route: 058
  3. COSENTYX [Suspect]
     Active Substance: SECUKINUMAB
     Dosage: 300 MG (ONE PREFILLED PEN EVERY MONTH THEN ONE PREFILLED PEN EVERY 2 WEEKS)
     Route: 058

REACTIONS (5)
  - Immunodeficiency [Unknown]
  - Symptom recurrence [Unknown]
  - Off label use [Unknown]
  - Hidradenitis [Unknown]
  - Fatigue [Unknown]
